FAERS Safety Report 12739690 (Version 2)
Quarter: 2016Q3

REPORT INFORMATION
  Report Type: Spontaneous
  Country: PL (occurrence: PL)
  Receive Date: 20160913
  Receipt Date: 20160915
  Transmission Date: 20161109
  Serious: Yes (Hospitalization, Other)
  Sender: FDA-Public Use
  Company Number: PL-ABBVIE-16P-129-1635116-00

PATIENT
  Sex: Female

DRUGS (4)
  1. LIPANTHYL [Suspect]
     Active Substance: FENOFIBRATE
     Route: 065
  2. LIPANTHYL [Suspect]
     Active Substance: FENOFIBRATE
     Dosage: SUPRA
     Route: 065
  3. LIPANTHYL [Suspect]
     Active Substance: FENOFIBRATE
     Indication: PRODUCT USED FOR UNKNOWN INDICATION
     Dosage: 200M
     Route: 065
  4. LIPANTHYL [Suspect]
     Active Substance: FENOFIBRATE
     Dosage: 267M
     Route: 065

REACTIONS (17)
  - Liver disorder [Recovered/Resolved]
  - Left ventricular hypertrophy [Unknown]
  - Gait disturbance [Recovering/Resolving]
  - Mobility decreased [Recovered/Resolved]
  - Thyroid disorder [Recovering/Resolving]
  - Gallbladder disorder [Recovering/Resolving]
  - Diabetes mellitus [Recovering/Resolving]
  - Bone pain [Unknown]
  - Teeth brittle [Recovered/Resolved]
  - Abdominal pain upper [Recovering/Resolving]
  - Monoparesis [Recovering/Resolving]
  - Urinary tract inflammation [Recovering/Resolving]
  - Renal disorder [Recovered/Resolved]
  - Myalgia [Unknown]
  - Liver disorder [Recovering/Resolving]
  - Pancreatic disorder [Recovering/Resolving]
  - Atrioventricular block first degree [Unknown]
